FAERS Safety Report 6544508-1 (Version None)
Quarter: 2010Q1

REPORT INFORMATION
  Report Type: 
  Country: None (occurrence: None)
  Receive Date: 20100120
  Receipt Date: 20100120
  Transmission Date: 20100710
  Serious: No
  Sender: FDA-Public Use
  Company Number: None

PATIENT
  Sex: Female
  Weight: 74.8435 kg

DRUGS (2)
  1. ASTEPRO [Suspect]
     Indication: MULTIPLE ALLERGIES
     Dosage: 2 SPRAYS EACH NOSTRIL 2 TIMES PER DAY NASAL
     Route: 045
     Dates: start: 20091205, end: 20091213
  2. ASTEPRO [Suspect]
     Indication: MULTIPLE ALLERGIES
     Dosage: 2 SPRAYS EACH NOSTRIL 2 TIMES PER DAY NASAL
     Route: 045
     Dates: start: 20100105, end: 20100113

REACTIONS (3)
  - BLEPHAROSPASM [None]
  - PARAESTHESIA [None]
  - VISUAL IMPAIRMENT [None]
